FAERS Safety Report 6819472-8 (Version None)
Quarter: 2010Q3

REPORT INFORMATION
  Report Type: 
  Country: None (occurrence: None)
  Receive Date: 20100707
  Receipt Date: 20100630
  Transmission Date: 20110219
  Serious: Yes (Death, Hospitalization)
  Sender: FDA-Public Use
  Company Number: US-ABBOTT-09P-163-0596230-00

PATIENT
  Age: 53 Year
  Sex: Male
  Weight: 69.008 kg

DRUGS (26)
  1. RITONAVIR SOFT GELATIN CAPSULES [Suspect]
     Indication: HIV INFECTION
     Route: 048
     Dates: start: 20060522
  2. MK-0518 [Suspect]
     Indication: HIV INFECTION
     Route: 048
     Dates: start: 20061121, end: 20071206
  3. MK-0518 [Suspect]
     Route: 048
     Dates: start: 20071208, end: 20071221
  4. MK-0518 [Suspect]
     Route: 048
     Dates: start: 20071223, end: 20080109
  5. MK-0518 [Suspect]
     Route: 048
     Dates: start: 20080111
  6. MK-0518 (BLINDED) [Suspect]
     Indication: HIV INFECTION
     Route: 048
     Dates: start: 20060522, end: 20061120
  7. DARUNAVIR [Suspect]
     Indication: HIV INFECTION
     Route: 048
     Dates: start: 20060522
  8. ENFUVIRTIDE [Suspect]
     Indication: HIV INFECTION
     Route: 058
     Dates: start: 20060522, end: 20070703
  9. INTELENCE [Suspect]
     Indication: HIV INFECTION
     Route: 048
     Dates: start: 20070703
  10. EPIVIR [Suspect]
     Indication: HIV INFECTION
     Route: 048
     Dates: start: 20060522, end: 20071017
  11. ZERIT [Suspect]
     Indication: HIV INFECTION
     Route: 048
     Dates: start: 20060522, end: 20071017
  12. FENTANYL [Suspect]
     Indication: PAIN
     Dosage: PATCH
     Dates: start: 20080512, end: 20080512
  13. RALTEGRAVIR [Suspect]
     Indication: HIV INFECTION
     Route: 048
     Dates: start: 20060522, end: 20071017
  14. ACTOS [Concomitant]
     Indication: PRODUCT USED FOR UNKNOWN INDICATION
     Dates: start: 20061129
  15. CRESTOR [Concomitant]
     Indication: PRODUCT USED FOR UNKNOWN INDICATION
     Dates: start: 20070801
  16. LIPRAM [Concomitant]
     Indication: PRODUCT USED FOR UNKNOWN INDICATION
     Dates: start: 20051115
  17. PROCRIT [Concomitant]
     Indication: PRODUCT USED FOR UNKNOWN INDICATION
     Dates: start: 20070220, end: 20070916
  18. SEPTRA DS [Concomitant]
     Indication: PRODUCT USED FOR UNKNOWN INDICATION
     Dates: start: 19960701, end: 20070916
  19. STARLIX [Concomitant]
     Indication: PRODUCT USED FOR UNKNOWN INDICATION
     Dates: start: 20070601
  20. VALTREX [Concomitant]
     Indication: PRODUCT USED FOR UNKNOWN INDICATION
     Dates: start: 20051101
  21. ABACAVIR SULFATE/LAMIVUDINE [Concomitant]
     Indication: PRODUCT USED FOR UNKNOWN INDICATION
     Dates: start: 20071018
  22. FLUCONAZOLE [Concomitant]
     Indication: PRODUCT USED FOR UNKNOWN INDICATION
     Dates: start: 19960701
  23. LISINOPRIL [Concomitant]
     Indication: PRODUCT USED FOR UNKNOWN INDICATION
     Dates: start: 20070101
  24. RANITIDINE [Concomitant]
     Indication: PRODUCT USED FOR UNKNOWN INDICATION
     Dates: start: 20040701
  25. TESTOSTERONE [Concomitant]
     Indication: PRODUCT USED FOR UNKNOWN INDICATION
     Dates: start: 19980701
  26. VITAMIN TAB [Concomitant]
     Indication: PRODUCT USED FOR UNKNOWN INDICATION
     Dates: start: 19900701

REACTIONS (16)
  - ACNE [None]
  - ALOPECIA [None]
  - BLOOD POTASSIUM INCREASED [None]
  - CONDITION AGGRAVATED [None]
  - DECREASED APPETITE [None]
  - DRUG HYPERSENSITIVITY [None]
  - FATIGUE [None]
  - HEADACHE [None]
  - HYPERKALAEMIA [None]
  - METASTASES TO LUNG [None]
  - NAUSEA [None]
  - PHARYNGEAL ULCERATION [None]
  - SKIN GRAFT [None]
  - SQUAMOUS CELL CARCINOMA [None]
  - VOMITING [None]
  - WEIGHT DECREASED [None]
